FAERS Safety Report 7733307-0 (Version None)
Quarter: 2011Q3

REPORT INFORMATION
  Report Type: 
  Country: None (occurrence: None)
  Receive Date: 20110907
  Receipt Date: 20110826
  Transmission Date: 20111222
  Serious: Yes (Hospitalization)
  Sender: FDA-Public Use
  Company Number: US-BAYER-2011-006657

PATIENT
  Age: 36 Year
  Sex: Female
  Weight: 93.878 kg

DRUGS (6)
  1. LEXAPRO [Concomitant]
  2. YASMIN [Suspect]
     Indication: ORAL CONTRACEPTION
     Dosage: UNK
     Dates: start: 20050101, end: 20090101
  3. YASMIN [Suspect]
     Indication: PREMENSTRUAL SYNDROME
  4. TOPAMAX [Concomitant]
     Dosage: UNK
     Dates: start: 20030101, end: 20090101
  5. NSAID'S [Concomitant]
  6. RELPAX [Concomitant]
     Dosage: UNK
     Dates: start: 20030101, end: 20090101

REACTIONS (6)
  - PAIN [None]
  - ANXIETY [None]
  - PULMONARY EMBOLISM [None]
  - EMOTIONAL DISTRESS [None]
  - BRONCHITIS [None]
  - DYSPNOEA [None]
